FAERS Safety Report 25737484 (Version 1)
Quarter: 2025Q3

REPORT INFORMATION
  Report Type: Spontaneous
  Country: US (occurrence: US)
  Receive Date: 20250828
  Receipt Date: 20250828
  Transmission Date: 20251020
  Serious: No
  Sender: TEIKOKU
  Company Number: US-TPU-TPU-2025-00399

PATIENT
  Sex: Female

DRUGS (3)
  1. LIDOCAINE PATCH [Suspect]
     Active Substance: LIDOCAINE
     Indication: Post herpetic neuralgia
  2. LIDOCAINE [Concomitant]
     Active Substance: LIDOCAINE
  3. LIDOCAINE [Concomitant]
     Active Substance: LIDOCAINE

REACTIONS (1)
  - Drug ineffective [Unknown]
